FAERS Safety Report 5362079-2 (Version None)
Quarter: 2007Q2

REPORT INFORMATION
  Report Type: 
  Country: None (occurrence: None)
  Receive Date: 20070619
  Receipt Date: 20070613
  Transmission Date: 20071010
  Serious: Yes (Hospitalization)
  Sender: FDA-Public Use
  Company Number: LU-AMGEN-US211975

PATIENT
  Age: 34 Year
  Sex: Female
  Weight: 58 kg

DRUGS (2)
  1. ENBREL [Suspect]
     Indication: SPINAL OSTEOARTHRITIS
     Dosage: NOT PROVIDED
     Route: 058
     Dates: end: 20061201
  2. NAPROSYN [Concomitant]
     Indication: SPINAL OSTEOARTHRITIS
     Dosage: NOT PROVIDED
     Route: 048

REACTIONS (1)
  - DEMYELINATION [None]
